FAERS Safety Report 24177814 (Version 1)
Quarter: 2024Q3

REPORT INFORMATION
  Report Type: Report from Study
  Country: US (occurrence: US)
  Receive Date: 20240806
  Receipt Date: 20240806
  Transmission Date: 20241017
  Serious: Yes (Life-Threatening)
  Sender: JAZZ
  Company Number: US-JAZZ PHARMACEUTICALS-2024-US-010712

PATIENT
  Age: 24 Year
  Sex: Female

DRUGS (4)
  1. XYWAV [Suspect]
     Active Substance: CALCIUM OXYBATE\MAGNESIUM OXYBATE\POTASSIUM OXYBATE\SODIUM OXYBATE
     Indication: Narcolepsy
     Dosage: 4.5 GRAM, BID
     Dates: start: 20240712, end: 20240712
  2. XYWAV [Suspect]
     Active Substance: CALCIUM OXYBATE\MAGNESIUM OXYBATE\POTASSIUM OXYBATE\SODIUM OXYBATE
     Indication: Cataplexy
     Dosage: 2.25 GRAM, BID
     Route: 048
     Dates: start: 20240715, end: 20240718
  3. XYWAV [Suspect]
     Active Substance: CALCIUM OXYBATE\MAGNESIUM OXYBATE\POTASSIUM OXYBATE\SODIUM OXYBATE
     Indication: Somnolence
  4. ALLEGRA ALLERGY [Concomitant]
     Active Substance: FEXOFENADINE HYDROCHLORIDE
     Indication: Hypersensitivity
     Dosage: 180 MILLIGRAM

REACTIONS (12)
  - Apnoea [Recovered/Resolved]
  - Psychogenic seizure [Recovered/Resolved]
  - Vomiting [Recovered/Resolved]
  - Head banging [Unknown]
  - Chills [Unknown]
  - Dysarthria [Unknown]
  - Bradyphrenia [Unknown]
  - Dyskinesia [Recovering/Resolving]
  - Nausea [Unknown]
  - Excessive eye blinking [Unknown]
  - Joint dislocation [Unknown]
  - Abnormal behaviour [Recovered/Resolved]

NARRATIVE: CASE EVENT DATE: 20240701
